FAERS Safety Report 5523335-8 (Version None)
Quarter: 2007Q4

REPORT INFORMATION
  Report Type: 
  Country: None (occurrence: None)
  Receive Date: 20071121
  Receipt Date: 20071110
  Transmission Date: 20080405
  Serious: Yes (Other)
  Sender: FDA-Public Use
  Company Number: A0695645A

PATIENT
  Age: 45 Year
  Sex: Female
  Weight: 63.6 kg

DRUGS (4)
  1. ZYBAN [Suspect]
     Dosage: 150MG PER DAY
     Route: 048
     Dates: start: 20071109, end: 20071109
  2. NICODERM [Concomitant]
     Dates: start: 20071001
  3. PAXIL [Concomitant]
     Dates: start: 20060101
  4. ELAVIL [Concomitant]
     Dates: start: 20030101

REACTIONS (3)
  - PALPITATIONS [None]
  - SUICIDAL IDEATION [None]
  - TREMOR [None]
